FAERS Safety Report 5792590-1 (Version None)
Quarter: 2008Q2

REPORT INFORMATION
  Report Type: 
  Country: None (occurrence: None)
  Receive Date: 20080624
  Receipt Date: 20080601
  Transmission Date: 20081010
  Serious: Yes (Other)
  Sender: FDA-Public Use
  Company Number: 20520080235

PATIENT
  Age: 45 Year
  Sex: Female

DRUGS (5)
  1. SOMATULINA AUTOGEL 120MG(LANREOTIDE ACETATE)(LANREOTIDE ACETATE) [Suspect]
     Indication: ACROMEGALY
     Dosage: (120 MG,EVERY 28 DAYS)   SUBCUTANEOUS
     Route: 058
     Dates: start: 20071030, end: 20080219
  2. PEGVISOMANT [Suspect]
     Dosage: (60 MG,ONCE WEEKLY)   SUBCUTANEOUS
     Route: 058
     Dates: start: 20080219
  3. FEROGRADUMET [Concomitant]
  4. TRAMADOL HCL [Concomitant]
  5. IBUPROFEN [Concomitant]

REACTIONS (2)
  - HYPERSENSITIVITY [None]
  - URTICARIA [None]
